FAERS Safety Report 10927697 (Version 1)
Quarter: 2015Q1

REPORT INFORMATION
  Report Type: Report from Study
  Country: US (occurrence: US)
  Receive Date: 20150319
  Receipt Date: 20150319
  Transmission Date: 20150721
  Serious: Yes (Hospitalization)
  Sender: FDA-Public Use
  Company Number: US-ROCHE-1552359

PATIENT
  Age: 63 Year
  Sex: Female
  Weight: 90.7 kg

DRUGS (3)
  1. BEVACIZUMAB [Suspect]
     Active Substance: BEVACIZUMAB
     Indication: ENDOMETRIAL CANCER RECURRENT
     Dosage: ON DAY ONE* 6 CYCLES, LAST DOSE PRIOR TO SAE: 19/FEB/2015
     Route: 042
     Dates: start: 20100903
  2. PACLITAXEL. [Suspect]
     Active Substance: PACLITAXEL
     Indication: ENDOMETRIAL CANCER RECURRENT
     Dosage: ON DAY 1 * 6 CYCLES, LAST DOSE PRIOR TO SAE: 02/MAR/2012
     Route: 042
  3. CARBOPLATIN. [Suspect]
     Active Substance: CARBOPLATIN
     Indication: ENDOMETRIAL CANCER RECURRENT
     Dosage: 6 AUC, ON DAY 1 * 6 CYCLES, LAST DOSE PRIOR TO SAE: 02/MAR/2012
     Route: 042

REACTIONS (3)
  - Angina pectoris [Recovering/Resolving]
  - Hypertension [Recovering/Resolving]
  - Palpitations [Recovering/Resolving]

NARRATIVE: CASE EVENT DATE: 20150222
